FAERS Safety Report 22080464 (Version 1)
Quarter: 2023Q1

REPORT INFORMATION
  Report Type: Spontaneous
  Country: GB (occurrence: GB)
  Receive Date: 20230309
  Receipt Date: 20230309
  Transmission Date: 20230418
  Serious: Yes (Other)
  Sender: FDA-Public Use
  Company Number: GB-MHRA-MED-202303050847483920-CBQKW

PATIENT
  Age: 46 Year
  Sex: Male
  Weight: 98 kg

DRUGS (4)
  1. OXYCODONE HYDROCHLORIDE [Suspect]
     Active Substance: OXYCODONE HYDROCHLORIDE
     Indication: Adverse drug reaction
     Dosage: NOTE AS WAS IN INJECTION PUMP, AND THEN THEY CONTINUED TO GIVE IT TO ME ORALLYN
     Route: 065
     Dates: start: 20230223, end: 20230223
  2. DIAZEPAM [Concomitant]
     Active Substance: DIAZEPAM
     Indication: Adverse drug reaction
     Dosage: UNK
     Route: 065
     Dates: start: 20230227
  3. ACETAMINOPHEN [Concomitant]
     Active Substance: ACETAMINOPHEN
     Indication: Adverse drug reaction
     Dosage: UNK
     Route: 065
     Dates: start: 20230223
  4. SENNA [Concomitant]
     Active Substance: SENNA LEAF\SENNOSIDES\SENNOSIDES A AND B
     Indication: Product used for unknown indication
     Dosage: UNK
     Route: 065
     Dates: start: 20230223

REACTIONS (8)
  - Confusional state [Recovered/Resolved]
  - Oxygen saturation [Not Recovered/Not Resolved]
  - Hallucination [Recovered/Resolved]
  - Dry mouth [Recovering/Resolving]
  - Muscle spasms [Not Recovered/Not Resolved]
  - Cold sweat [Not Recovered/Not Resolved]
  - Poor quality sleep [Recovering/Resolving]
  - Hypotension [Unknown]

NARRATIVE: CASE EVENT DATE: 20230223
